FAERS Safety Report 19200241 (Version 1)
Quarter: 2021Q2

REPORT INFORMATION
  Report Type: Spontaneous
  Country: US (occurrence: US)
  Receive Date: 20210430
  Receipt Date: 20210430
  Transmission Date: 20210717
  Serious: Yes (Hospitalization)
  Sender: FDA-Public Use
  Company Number: None

PATIENT
  Sex: Male
  Weight: 91.3 kg

DRUGS (1)
  1. ERBITUX [Suspect]
     Active Substance: CETUXIMAB

REACTIONS (7)
  - Lung consolidation [None]
  - Hilar lymphadenopathy [None]
  - Pneumonia [None]
  - Lung abscess [None]
  - Haemorrhage [None]
  - Pleural effusion [None]
  - Bronchiectasis [None]

NARRATIVE: CASE EVENT DATE: 20210328
